FAERS Safety Report 21769504 (Version 1)
Quarter: 2022Q4

REPORT INFORMATION
  Report Type: Report from Study
  Country: IT (occurrence: IT)
  Receive Date: 20221223
  Receipt Date: 20221223
  Transmission Date: 20230113
  Serious: Yes (Life-Threatening, Other)
  Sender: FDA-Public Use
  Company Number: None

PATIENT
  Age: 14 Year
  Sex: Female

DRUGS (4)
  1. QUETIAPINE FUMARATE [Suspect]
     Active Substance: QUETIAPINE FUMARATE
     Indication: Affective disorder
     Dosage: DOSAGE: 2000, UNIT OF MEASURE: MILLIGRAMS, FREQUENCY OF ADMINISTRATION: TOTAL, ROUTE OF ADMINISTRATI
     Route: 048
     Dates: start: 20220926
  2. ACETAMINOPHEN [Suspect]
     Active Substance: ACETAMINOPHEN
     Indication: Product used for unknown indication
     Dosage: DOSAGE: 1000, UNIT OF MEASURE: MILLIGRAMS, FREQUENCY OF ADMINISTRATION: TOTAL, ROUTE OF ADMINISTRATI
     Route: 048
     Dates: start: 20220926
  3. KETOPROFEN\SUCRALFATE [Suspect]
     Active Substance: KETOPROFEN\SUCRALFATE
     Indication: Product used for unknown indication
     Dosage: DOSAGE: 25, UNIT OF MEASURE: MILLIGRAMS, FREQUENCY OF ADMINISTRATION: TOTAL, ROUTE OF ADMINISTRATION
     Route: 048
  4. MELATONIN [Suspect]
     Active Substance: MELATONIN
     Indication: Product used for unknown indication
     Dosage: DOSAGE: 24, UNIT OF MEASURE: DOSING UNIT, FREQUENCY OF ADMINISTRATION: TOTAL, ROUTE OF ADMINISTRATIO
     Route: 048
     Dates: start: 20220726

REACTIONS (4)
  - Drug abuse [Recovering/Resolving]
  - Vomiting [Recovering/Resolving]
  - Sopor [Recovering/Resolving]
  - Self-injurious ideation [Unknown]

NARRATIVE: CASE EVENT DATE: 20220927
